FAERS Safety Report 10764911 (Version 1)
Quarter: 2015Q1

REPORT INFORMATION
  Report Type: Spontaneous
  Country: US (occurrence: US)
  Receive Date: 20150205
  Receipt Date: 20150205
  Transmission Date: 20150721
  Serious: No
  Sender: FDA-Public Use
  Company Number: US-AMGEN-USASP2015009046

PATIENT
  Age: 77 Year
  Sex: Female

DRUGS (3)
  1. ENBREL [Suspect]
     Active Substance: ETANERCEPT
     Indication: PSORIATIC ARTHROPATHY
     Dosage: 50 MG, QWK
     Route: 065
     Dates: start: 201406, end: 201411
  2. ENBREL [Suspect]
     Active Substance: ETANERCEPT
     Indication: RHEUMATOID ARTHRITIS
  3. PREDNISONE. [Concomitant]
     Active Substance: PREDNISONE
     Dosage: UNK

REACTIONS (5)
  - Arthritis [Not Recovered/Not Resolved]
  - Sinusitis [Recovered/Resolved]
  - Mobility decreased [Recovered/Resolved]
  - Dysphagia [Recovered/Resolved]
  - Gait disturbance [Recovered/Resolved]

NARRATIVE: CASE EVENT DATE: 2014
